FAERS Safety Report 18242970 (Version 2)
Quarter: 2022Q4

REPORT INFORMATION
  Report Type: Spontaneous
  Country: US (occurrence: US)
  Receive Date: 20200908
  Receipt Date: 20221017
  Transmission Date: 20230113
  Serious: Yes (Other)
  Sender: FDA-Public Use
  Company Number: US-ALLERGAN-2034009US

PATIENT

DRUGS (2)
  1. TIMOLOL [Suspect]
     Active Substance: TIMOLOL
     Indication: Open angle glaucoma
     Dosage: UNK, BID
     Route: 047
  2. TIMOLOL [Suspect]
     Active Substance: TIMOLOL
     Indication: Ocular hypertension

REACTIONS (1)
  - Coronary artery disease [Unknown]
